FAERS Safety Report 25524102 (Version 1)
Quarter: 2025Q3

REPORT INFORMATION
  Report Type: Spontaneous
  Country: US (occurrence: None)
  Receive Date: 20250704
  Receipt Date: 20250704
  Transmission Date: 20251020
  Serious: Yes (Other)
  Sender: FDA-CTU
  Company Number: None

PATIENT
  Age: 33 Year
  Sex: Male
  Weight: 76.5 kg

DRUGS (1)
  1. COSMETICS [Suspect]
     Active Substance: COSMETICS
     Indication: Therapeutic skin care topical
     Dosage: FREQUENCY : DAILY;?
     Route: 061
     Dates: start: 20250310, end: 20250320

REACTIONS (7)
  - Application site discomfort [None]
  - Application site irritation [None]
  - Application site erythema [None]
  - Application site pain [None]
  - Musculoskeletal disorder [None]
  - Application site burn [None]
  - Application site scar [None]

NARRATIVE: CASE EVENT DATE: 20250320
